FAERS Safety Report 4578960-8 (Version None)
Quarter: 2005Q1

REPORT INFORMATION
  Report Type: 
  Country: None (occurrence: None)
  Receive Date: 20050121
  Receipt Date: 20040917
  Transmission Date: 20050727
  Serious: Yes (Other)
  Sender: FDA-Public Use
  Company Number: HQWYE121620SEP04

PATIENT
  Age: 27 Year
  Sex: Female
  Weight: 81.27 kg

DRUGS (1)
  1. NORPLANT SYSTEM [Suspect]
     Indication: CONTRACEPTION
     Dosage: 6 CAPSULES, SUBCUTANEOUS
     Route: 058
     Dates: start: 19990101, end: 20040101

REACTIONS (3)
  - COMPLICATION OF DEVICE REMOVAL [None]
  - PREGNANCY [None]
  - UNEVALUABLE EVENT [None]
